FAERS Safety Report 15075373 (Version 2)
Quarter: 2019Q2

REPORT INFORMATION
  Report Type: Spontaneous
  Country: US (occurrence: US)
  Receive Date: 20180627
  Receipt Date: 20190626
  Transmission Date: 20190711
  Serious: Yes (Other)
  Sender: FDA-Public Use
  Company Number: US-SAOL THERAPEUTICS-2018SAO00237

PATIENT
  Age: 43 Year
  Sex: Female

DRUGS (2)
  1. LIORESAL [Suspect]
     Active Substance: BACLOFEN
     Dosage: 500 ?G, \DAY
     Route: 037
  2. LIORESAL [Suspect]
     Active Substance: BACLOFEN
     Dosage: 566.2 ?G, \DAY
     Route: 037

REACTIONS (7)
  - Drug withdrawal syndrome [Recovered/Resolved]
  - Fall [Unknown]
  - Device occlusion [Recovered/Resolved]
  - Cerebrospinal fluid leakage [Recovered/Resolved]
  - Muscle spasticity [Not Recovered/Not Resolved]
  - Complication associated with device [Recovered/Resolved]
  - Somnolence [Unknown]

NARRATIVE: CASE EVENT DATE: 201708
